FAERS Safety Report 21613698 (Version 1)
Quarter: 2022Q4

REPORT INFORMATION
  Report Type: Spontaneous
  Country: JP (occurrence: JP)
  Receive Date: 20221118
  Receipt Date: 20221118
  Transmission Date: 20230112
  Serious: Yes (Hospitalization, Other)
  Sender: FDA-Public Use
  Company Number: JP-SUN PHARMACEUTICAL INDUSTRIES LTD-2022RR-364479

PATIENT
  Age: 53 Year
  Sex: Male

DRUGS (7)
  1. PREDNISOLONE [Suspect]
     Active Substance: PREDNISOLONE
     Indication: Angioimmunoblastic T-cell lymphoma
     Dosage: 80 MILLIGRAM, UNK
     Route: 065
  2. BORTEZOMIB [Suspect]
     Active Substance: BORTEZOMIB
     Indication: Angioimmunoblastic T-cell lymphoma
     Dosage: 1.3 MICROGRAM/SQ. METER, UNK
     Route: 065
  3. BORTEZOMIB [Suspect]
     Active Substance: BORTEZOMIB
     Dosage: 5 DOSES
     Route: 065
  4. DEXAMETHASONE [Suspect]
     Active Substance: DEXAMETHASONE
     Indication: Angioimmunoblastic T-cell lymphoma
     Dosage: 40 MILLIGRAM, DAILY FOR 3 DAYS
     Route: 065
  5. ASPIRIN [Suspect]
     Active Substance: ASPIRIN
     Indication: Ischaemic heart disease prophylaxis
     Dosage: 200 MILLIGRAM, UNK
     Route: 065
  6. PRASUGREL [Suspect]
     Active Substance: PRASUGREL
     Indication: Ischaemic heart disease prophylaxis
     Dosage: 20 MILLIGRAM, DAILY
     Route: 065
  7. HEPARIN [Suspect]
     Active Substance: HEPARIN SODIUM
     Indication: Ischaemic heart disease prophylaxis
     Dosage: UNK
     Route: 042

REACTIONS (4)
  - Drug ineffective [Unknown]
  - Disease progression [Unknown]
  - Respiratory failure [Unknown]
  - Haemorrhage [Unknown]
